FAERS Safety Report 23259462 (Version 4)
Quarter: 2023Q4

REPORT INFORMATION
  Report Type: Spontaneous
  Country: IT (occurrence: IT)
  Receive Date: 20231204
  Receipt Date: 20231219
  Transmission Date: 20240109
  Serious: Yes (Hospitalization, Other)
  Sender: FDA-Public Use
  Company Number: IT-MLMSERVICE-20231120-4668394-1

PATIENT
  Age: 59 Year
  Sex: Male

DRUGS (10)
  1. VINCRISTINE SULFATE [Suspect]
     Active Substance: VINCRISTINE SULFATE
     Indication: High-grade B-cell lymphoma
     Dosage: UNK, 4 CYCLIC, R-CHOP
  2. VINCRISTINE SULFATE [Suspect]
     Active Substance: VINCRISTINE SULFATE
     Indication: Tonsil cancer
  3. DOXORUBICIN HYDROCHLORIDE [Suspect]
     Active Substance: DOXORUBICIN HYDROCHLORIDE
     Indication: High-grade B-cell lymphoma
     Dosage: UNK, 4 CYCLIC, R-CHOP
  4. DOXORUBICIN HYDROCHLORIDE [Suspect]
     Active Substance: DOXORUBICIN HYDROCHLORIDE
     Indication: Tonsil cancer
  5. RITUXIMAB [Suspect]
     Active Substance: RITUXIMAB
     Indication: High-grade B-cell lymphoma
     Dosage: UNK, 4 CYCLIC, R-CHOP
  6. RITUXIMAB [Suspect]
     Active Substance: RITUXIMAB
     Indication: Tonsil cancer
  7. CYCLOPHOSPHAMIDE [Suspect]
     Active Substance: CYCLOPHOSPHAMIDE
     Indication: High-grade B-cell lymphoma
     Dosage: UNK, 4 CYCLIC, R-CHOP
  8. CYCLOPHOSPHAMIDE [Suspect]
     Active Substance: CYCLOPHOSPHAMIDE
     Indication: Tonsil cancer
  9. PREDNISOLONE [Suspect]
     Active Substance: PREDNISOLONE
     Indication: High-grade B-cell lymphoma
     Dosage: UNK, 4 CYCLIC, R-CHOP
  10. PREDNISOLONE [Suspect]
     Active Substance: PREDNISOLONE
     Indication: Tonsil cancer

REACTIONS (3)
  - Second primary malignancy [Recovered/Resolved]
  - Invasive ductal breast carcinoma [Recovered/Resolved]
  - Neoplasm progression [Recovered/Resolved]
